FAERS Safety Report 12081765 (Version 2)
Quarter: 2016Q1

REPORT INFORMATION
  Report Type: Spontaneous
  Country: NL (occurrence: NL)
  Receive Date: 20160216
  Receipt Date: 20160216
  Transmission Date: 20160526
  Serious: Yes (Life-Threatening, Hospitalization, Other)
  Sender: FDA-Public Use
  Company Number: NL-BAYER-2016-028249

PATIENT
  Age: 64 Year
  Sex: Male
  Weight: 89.98 kg

DRUGS (18)
  1. ASPIRIN. [Suspect]
     Active Substance: ASPIRIN
     Indication: ANTIPLATELET THERAPY
     Dosage: 80 MG, QD
     Route: 048
  2. CETOMACROGOL 1000 [Concomitant]
     Indication: SKIN IRRITATION
     Dosage: 10% THREE TIMES A DAY
  3. SILODOSIN [Concomitant]
     Active Substance: SILODOSIN
     Indication: URINARY RETENTION
     Dosage: 4 MG DAILY
     Route: 048
  4. METHOTREXATE [Concomitant]
     Active Substance: METHOTREXATE
     Indication: ROSACEA
     Dosage: 25 MG WEEKLY
  5. MOMETASONE FUROATE. [Concomitant]
     Active Substance: MOMETASONE FUROATE
     Indication: SKIN IRRITATION
     Dosage: 1 MG TWICE A WEEK
  6. FOLIC ACID. [Concomitant]
     Active Substance: FOLIC ACID
     Indication: PROPHYLAXIS
     Dosage: 5 MG TWICE A WEEK
     Route: 046
  7. BRIMONIDINE [Concomitant]
     Active Substance: BRIMONIDINE TARTRATE
     Indication: ROSACEA
     Dosage: 3 MG, DAILY
  8. PHENPROCOUMON [Suspect]
     Active Substance: PHENPROCOUMON
     Indication: ANTICOAGULANT THERAPY
     Dosage: 3 MG, AS NEEDED
     Route: 048
  9. RAMIPRIL. [Concomitant]
     Active Substance: RAMIPRIL
     Indication: HYPERTENSION
     Dosage: 2.5 MG DAILY
     Route: 048
  10. TIOTROPIUM [Concomitant]
     Active Substance: TIOTROPIUM
     Indication: CHRONIC OBSTRUCTIVE PULMONARY DISEASE
     Dosage: 5 UG DAILY INHALED
     Route: 055
  11. NITROGLYCERINE [Concomitant]
     Active Substance: NITROGLYCERIN
     Indication: ANGINA PECTORIS
     Dosage: 0.4 MG AS NEEDED
     Route: 060
  12. PANTOPRAZOLE [Concomitant]
     Active Substance: PANTOPRAZOLE SODIUM
     Indication: PROPHYLAXIS
     Dosage: 20 MG, DAILY
     Route: 048
  13. BETAMETHASONE DIPROPIONATE. [Concomitant]
     Active Substance: BETAMETHASONE DIPROPIONATE
     Indication: PSORIASIS
     Dosage: 500 UG AS NEEDED
  14. CALCIPOTRIOL [Concomitant]
     Active Substance: CALCIPOTRIENE
     Indication: PSORIASIS
     Dosage: 50 UG AS NEEDED
  15. ATROVENT [Concomitant]
     Active Substance: IPRATROPIUM BROMIDE
     Indication: CHRONIC OBSTRUCTIVE PULMONARY DISEASE
     Dosage: 20 UG FOUR TIMES A DAY
  16. CLOBETASOL [Concomitant]
     Active Substance: CLOBETASOL
     Indication: PSORIASIS
     Dosage: 0.5 MG THREE TIMES A WEEK
  17. KETOCONAZOL [Concomitant]
     Active Substance: KETOCONAZOLE
     Indication: ECZEMA
     Dosage: 20 MG TWICE A WEEK
  18. ISOSORBIDE MONONITRATE. [Concomitant]
     Active Substance: ISOSORBIDE MONONITRATE
     Indication: ANGINA PECTORIS
     Dosage: 25 MG DAILY
     Route: 048

REACTIONS (6)
  - Anaemia [None]
  - Haemorrhagic stroke [Recovering/Resolving]
  - Epilepsy [Recovered/Resolved]
  - Pneumonia [Recovered/Resolved]
  - Humerus fracture [Recovering/Resolving]
  - Labelled drug-drug interaction medication error [None]

NARRATIVE: CASE EVENT DATE: 20150811
